FAERS Safety Report 8205181-X (Version None)
Quarter: 2012Q1

REPORT INFORMATION
  Report Type: 
  Country: None (occurrence: None)
  Receive Date: 20120313
  Receipt Date: 20120227
  Transmission Date: 20120608
  Serious: Yes (Hospitalization, Disabling)
  Sender: FDA-Public Use
  Company Number: US-ROCHE-1043955

PATIENT
  Sex: Female
  Weight: 36.32 kg

DRUGS (10)
  1. CHANTIX [Suspect]
     Indication: EX-TOBACCO USER
     Route: 048
     Dates: start: 20110901, end: 20120101
  2. NEXIUM [Suspect]
     Indication: ABDOMINAL DISCOMFORT
  3. ADVAIR DISKUS 100/50 [Suspect]
     Indication: DYSPNOEA
     Dosage: 500/50 MG
  4. LEVOTHYROXINE SODIUM [Suspect]
     Indication: PRODUCT USED FOR UNKNOWN INDICATION
  5. ASPIRIN [Suspect]
     Indication: PRODUCT USED FOR UNKNOWN INDICATION
     Dates: start: 20111001
  6. SINGULAIR [Suspect]
     Indication: DYSPNOEA
  7. HYDROCODONE BITARTRATE [Suspect]
     Indication: ARTHRALGIA
     Dates: start: 20110101
  8. KLONOPIN [Suspect]
     Indication: PRODUCT USED FOR UNKNOWN INDICATION
  9. CALCIUM CARBONATE [Suspect]
     Indication: PRODUCT USED FOR UNKNOWN INDICATION
     Dates: start: 20111201
  10. METOCLOPRAMIDE [Suspect]
     Indication: ABDOMINAL DISCOMFORT
     Dates: start: 20111001

REACTIONS (6)
  - DRUG INTERACTION [None]
  - BALANCE DISORDER [None]
  - CEREBROVASCULAR ACCIDENT [None]
  - ABASIA [None]
  - APHASIA [None]
  - THOUGHT BLOCKING [None]
